FAERS Safety Report 6229961-5 (Version None)
Quarter: 2009Q2

REPORT INFORMATION
  Report Type: 
  Country: None (occurrence: None)
  Receive Date: 20090615
  Receipt Date: 20090605
  Transmission Date: 20091009
  Serious: Yes (Hospitalization)
  Sender: FDA-Public Use
  Company Number: US-AMGEN-US272618

PATIENT
  Sex: Male

DRUGS (8)
  1. PANITUMUMAB [Suspect]
     Indication: COLORECTAL CANCER
     Route: 042
     Dates: start: 20080129
  2. FOLINIC ACID [Concomitant]
     Route: 042
     Dates: start: 20080129
  3. FLUOROURACIL [Concomitant]
     Route: 042
     Dates: start: 20080129
  4. IRINOTECAN HCL [Concomitant]
     Route: 042
     Dates: start: 20080129
  5. ASPIRIN [Concomitant]
     Dates: start: 20040101
  6. PROTONIX [Concomitant]
     Dates: start: 20071101
  7. BENICAR [Concomitant]
     Dates: start: 20071101
  8. HYDROCHLOROTHIAZIDE [Concomitant]
     Dates: start: 20071101

REACTIONS (2)
  - ATRIAL FIBRILLATION [None]
  - HYPOMAGNESAEMIA [None]
